FAERS Safety Report 8401530-8 (Version None)
Quarter: 2012Q2

REPORT INFORMATION
  Report Type: 
  Country: None (occurrence: None)
  Receive Date: 20120601
  Receipt Date: 20120522
  Transmission Date: 20120825
  Serious: Yes (Hospitalization)
  Sender: FDA-Public Use
  Company Number: JP-VERTEX PHARMACEUTICALS INC.-AE-2012-007802

PATIENT
  Sex: Female

DRUGS (13)
  1. TELAVIC (TELAPREVIR) [Suspect]
     Route: 048
     Dates: start: 20120424, end: 20120510
  2. REBETOL [Concomitant]
     Route: 048
     Dates: start: 20120411, end: 20120510
  3. ADVAIR DISKUS 100/50 [Concomitant]
     Route: 055
  4. LAMISIL [Concomitant]
     Route: 061
     Dates: start: 20120508
  5. TELAVIC (TELAPREVIR) [Suspect]
     Indication: HEPATITIS C
     Route: 048
     Dates: start: 20120327, end: 20120423
  6. PROCHLORPERAZINE [Concomitant]
     Route: 048
     Dates: start: 20120404
  7. EBASTINE [Concomitant]
     Route: 048
     Dates: start: 20120327
  8. PEG-INTRON [Concomitant]
     Indication: HEPATITIS C
     Route: 058
     Dates: start: 20120327, end: 20120507
  9. TELAVIC (TELAPREVIR) [Suspect]
     Route: 048
     Dates: start: 20120511, end: 20120511
  10. ZOLPIDEM [Concomitant]
     Route: 048
     Dates: start: 20120507
  11. ALLERMIST [Concomitant]
     Route: 045
  12. REBETOL [Concomitant]
     Indication: HEPATITIS C
     Route: 048
     Dates: start: 20120327, end: 20120410
  13. REBETOL [Concomitant]
     Route: 048
     Dates: start: 20120511, end: 20120513

REACTIONS (3)
  - VOMITING [None]
  - NAUSEA [None]
  - DECREASED APPETITE [None]
